FAERS Safety Report 22596421 (Version 1)
Quarter: 2023Q2

REPORT INFORMATION
  Report Type: Spontaneous
  Country: US (occurrence: US)
  Receive Date: 20230613
  Receipt Date: 20230613
  Transmission Date: 20230722
  Serious: No
  Sender: FDA-Public Use
  Company Number: US-ABBVIE-5285427

PATIENT
  Age: 22 Year
  Sex: Male

DRUGS (1)
  1. SKYRIZI [Suspect]
     Active Substance: RISANKIZUMAB-RZAA
     Indication: Crohn^s disease
     Dosage: FORM STRENGTH: 360 MG
     Route: 058

REACTIONS (3)
  - Injection site pain [Unknown]
  - Product storage error [Not Recovered/Not Resolved]
  - Skin mass [Unknown]

NARRATIVE: CASE EVENT DATE: 20230607
